FAERS Safety Report 8489779-X (Version None)
Quarter: 2012Q3

REPORT INFORMATION
  Report Type: 
  Country: None (occurrence: None)
  Receive Date: 20120705
  Receipt Date: 20120622
  Transmission Date: 20120928
  Serious: Yes (Hospitalization, Other)
  Sender: FDA-Public Use
  Company Number: DE-UCBSA-060397

PATIENT
  Age: 74 Year
  Sex: Male

DRUGS (3)
  1. KEPPRA [Suspect]
     Indication: EPILEPSY
     Dosage: STRENGTH AND DOSAGE UNKNOWN
     Dates: start: 20110801
  2. KEPPRA [Suspect]
     Dosage: UNKNOWN DOSE, 4 TABLETS
  3. KEPPRA [Suspect]
     Dosage: 2 TABLETS
     Dates: end: 20120101

REACTIONS (6)
  - BLOOD URINE PRESENT [None]
  - ASTHENIA [None]
  - BONE MARROW FAILURE [None]
  - LEUKOPENIA [None]
  - ANAEMIA [None]
  - RESPIRATORY DISORDER [None]
